FAERS Safety Report 6185072-9 (Version None)
Quarter: 2009Q2

REPORT INFORMATION
  Report Type: 
  Country: None (occurrence: None)
  Receive Date: 20090511
  Receipt Date: 20090506
  Transmission Date: 20091009
  Serious: No
  Sender: FDA-Public Use
  Company Number: US-JNJFOC-20090501563

PATIENT
  Sex: Female
  Weight: 49.44 kg

DRUGS (5)
  1. FENTANYL TRANSDERMAL SYSTEM [Suspect]
     Indication: NECROTISING FASCIITIS
     Route: 062
  2. MESTINON [Concomitant]
     Indication: MYASTHENIA GRAVIS
     Route: 048
  3. COUMADIN [Concomitant]
     Dosage: 4 TIMES WEEKLY
     Route: 048
  4. COUMADIN [Concomitant]
     Indication: DEEP VEIN THROMBOSIS
     Dosage: 3 TIMES WEEKLY
     Route: 048
  5. PERCOCET [Concomitant]
     Indication: PAIN
     Dosage: 4 DAILY AS NEEDED
     Route: 048

REACTIONS (4)
  - DRUG INEFFECTIVE [None]
  - HYPERTENSION [None]
  - INAPPROPRIATE SCHEDULE OF DRUG ADMINISTRATION [None]
  - WITHDRAWAL SYNDROME [None]
